FAERS Safety Report 7887497-X (Version None)
Quarter: 2011Q4

REPORT INFORMATION
  Report Type: 
  Country: None (occurrence: None)
  Receive Date: 20111103
  Receipt Date: 20111026
  Transmission Date: 20120403
  Serious: Yes (Death, Hospitalization)
  Sender: FDA-Public Use
  Company Number: US-BRISTOL-MYERS SQUIBB COMPANY-16198848

PATIENT
  Age: 53 Year
  Sex: Male
  Weight: 65 kg

DRUGS (1)
  1. CISPLATIN [Suspect]
     Indication: HEAD AND NECK CANCER
     Dosage: LAST ADMINISTERED DATE:18/03/2008.
     Dates: start: 20080226

REACTIONS (6)
  - WEIGHT DECREASED [None]
  - HYPOGLYCAEMIA [None]
  - OESOPHAGEAL PAIN [None]
  - DEATH [None]
  - LUNG INFECTION [None]
  - DYSPHAGIA [None]
